FAERS Safety Report 4966310-4 (Version None)
Quarter: 2006Q2

REPORT INFORMATION
  Report Type: 
  Country: None (occurrence: None)
  Receive Date: 20060407
  Receipt Date: 20050328
  Transmission Date: 20061013
  Serious: Yes (Hospitalization)
  Sender: FDA-Public Use
  Company Number: US-MERCK-0503USA04923

PATIENT
  Age: 51 Year
  Sex: Female
  Weight: 88 kg

DRUGS (1)
  1. VIOXX [Suspect]
     Indication: ARTHRITIS
     Route: 048
     Dates: start: 20001215, end: 20030320

REACTIONS (25)
  - ACUTE PULMONARY OEDEMA [None]
  - ACUTE RESPIRATORY FAILURE [None]
  - ASTHMA [None]
  - BACTERIAL INFECTION [None]
  - BIPOLAR DISORDER [None]
  - CARDIAC FAILURE CONGESTIVE [None]
  - DEPRESSION [None]
  - DIABETES MELLITUS INADEQUATE CONTROL [None]
  - DIABETES MELLITUS NON-INSULIN-DEPENDENT [None]
  - ESCHERICHIA BACTERAEMIA [None]
  - HYPERTENSION [None]
  - HYPOXIA [None]
  - INCREASED VENTRICULAR AFTERLOAD [None]
  - LEUKOCYTOSIS [None]
  - MAJOR DEPRESSION [None]
  - METABOLIC ACIDOSIS [None]
  - MYOCARDIAL INFARCTION [None]
  - MYOCARDIAL ISCHAEMIA [None]
  - OBESITY [None]
  - PLEURAL EFFUSION [None]
  - PNEUMONIA [None]
  - PSYCHOTIC DISORDER [None]
  - PYREXIA [None]
  - RESPIRATORY ACIDOSIS [None]
  - VENTRICULAR DYSFUNCTION [None]
